FAERS Safety Report 22602220 (Version 1)
Quarter: 2023Q2

REPORT INFORMATION
  Report Type: Spontaneous
  Country: CN (occurrence: CN)
  Receive Date: 20230614
  Receipt Date: 20230614
  Transmission Date: 20230721
  Serious: Yes (Hospitalization)
  Sender: FDA-Public Use
  Company Number: CN-BAYER-2023A080791

PATIENT
  Age: 23 Year
  Sex: Female
  Weight: 55 kg

DRUGS (6)
  1. YAZ [Suspect]
     Active Substance: DROSPIRENONE\ETHINYL ESTRADIOL
     Indication: Contraception
     Dosage: 1 DF, QD
     Route: 048
     Dates: start: 20230518, end: 20230522
  2. CAFFEIC ACID [Suspect]
     Active Substance: CAFFEIC ACID
     Indication: Haemostasis
     Dosage: 3 DF, TID
     Route: 048
     Dates: start: 20230518, end: 20230522
  3. NIFURATEL [Suspect]
     Active Substance: NIFURATEL
     Indication: Infection prophylaxis
     Dosage: 2 DF, TID
     Route: 048
     Dates: start: 20230518, end: 20230522
  4. FU KE QIAN JIN [Concomitant]
     Indication: Postoperative care
     Dosage: 6 DF, TID
     Route: 048
     Dates: start: 20230518, end: 20230522
  5. YI GONG KE LI [Concomitant]
     Indication: Lochiostasis
     Dosage: 1 DF, TID
     Route: 048
     Dates: start: 20230518, end: 20230522
  6. JING DAI NING JIAO NANG [Concomitant]
     Indication: Postoperative care
     Dosage: 4 DF, TID
     Route: 048
     Dates: start: 20230518, end: 20230522

REACTIONS (5)
  - Drug-induced liver injury [Unknown]
  - Hepatic function abnormal [None]
  - Yellow skin [None]
  - Decreased appetite [Recovering/Resolving]
  - Pruritus [Recovering/Resolving]

NARRATIVE: CASE EVENT DATE: 20230522
